FAERS Safety Report 8884849 (Version 1)
Quarter: 2012Q4

REPORT INFORMATION
  Report Type: Report from Study
  Country: CA (occurrence: CA)
  Receive Date: 20121102
  Receipt Date: 20121102
  Transmission Date: 20130627
  Serious: Yes (Other)
  Sender: FDA-Public Use
  Company Number: CA-JNJFOC-20121012689

PATIENT
  Age: 51 Year
  Sex: Female

DRUGS (3)
  1. REMICADE [Suspect]
     Indication: COLITIS ULCERATIVE
     Route: 042
     Dates: start: 20120807, end: 20121004
  2. IMURAN [Concomitant]
     Route: 048
     Dates: start: 20120307
  3. PREDNISONE [Concomitant]
     Route: 048

REACTIONS (1)
  - Diverticulitis [Unknown]
